FAERS Safety Report 9351260 (Version 1)
Quarter: 2013Q2

REPORT INFORMATION
  Report Type: Spontaneous
  Country: NL (occurrence: NL)
  Receive Date: 20130617
  Receipt Date: 20130617
  Transmission Date: 20140414
  Serious: Yes (Other)
  Sender: FDA-Public Use
  Company Number: PHHY2013NL059142

PATIENT
  Age: 33 Year
  Sex: Female

DRUGS (1)
  1. AZITHROMYCIN [Suspect]
     Indication: OROPHARYNGEAL PAIN

REACTIONS (6)
  - Acute generalised exanthematous pustulosis [Unknown]
  - Rash pustular [Unknown]
  - Erythema [Unknown]
  - Subcorneal pustular dermatosis [Unknown]
  - Skin oedema [Unknown]
  - Pain [Unknown]
